FAERS Safety Report 5041181-9 (Version None)
Quarter: 2006Q3

REPORT INFORMATION
  Report Type: 
  Country: None (occurrence: None)
  Receive Date: 20060703
  Receipt Date: 20060614
  Transmission Date: 20061208
  Serious: Yes (Hospitalization)
  Sender: FDA-Public Use
  Company Number: 2006-06-0161

PATIENT
  Age: 33 Year
  Sex: Female

DRUGS (6)
  1. ESKALITH [Suspect]
     Indication: BIPOLAR DISORDER
     Dosage: 300MG PER DAY
     Route: 048
     Dates: end: 20060525
  2. INTRON A [Suspect]
     Indication: HEPATITIS C
     Dosage: 10MU PER DAY
     Route: 065
     Dates: start: 20060109, end: 20060525
  3. REBETOL [Suspect]
     Indication: HEPATITIS C
     Dosage: 1000MG PER DAY
     Route: 048
     Dates: start: 20060109, end: 20060525
  4. AMBIEN [Concomitant]
     Route: 048
  5. MOTRIN [Concomitant]
     Route: 048
  6. LAMICTAL [Concomitant]
     Route: 048

REACTIONS (8)
  - ACCIDENTAL OVERDOSE [None]
  - DIARRHOEA [None]
  - HYPOKALAEMIA [None]
  - HYPOTHYROIDISM [None]
  - MANIA [None]
  - RENAL FAILURE [None]
  - THERAPEUTIC AGENT TOXICITY [None]
  - VOMITING [None]
